FAERS Safety Report 25898706 (Version 1)
Quarter: 2025Q4

REPORT INFORMATION
  Report Type: Spontaneous
  Country: US (occurrence: US)
  Receive Date: 20251009
  Receipt Date: 20251009
  Transmission Date: 20260118
  Serious: No
  Sender: SANOFI AVENTIS
  Company Number: US-SA-2025SA296661

PATIENT
  Sex: Male
  Weight: 29.45 kg

DRUGS (2)
  1. DUPIXENT [Suspect]
     Active Substance: DUPILUMAB
     Indication: Dermatitis atopic
     Dosage: 300 MG, Q4W
     Route: 058
  2. BACITRACIN ZINC [Concomitant]
     Dosage: UNK

REACTIONS (4)
  - Tonsillitis [Recovering/Resolving]
  - Dermatitis atopic [Recovering/Resolving]
  - Rebound atopic dermatitis [Recovering/Resolving]
  - Intentional dose omission [Unknown]
